FAERS Safety Report 11596858 (Version 32)
Quarter: 2018Q3

REPORT INFORMATION
  Report Type: Spontaneous
  Country: US (occurrence: US)
  Receive Date: 20151006
  Receipt Date: 20180918
  Transmission Date: 20181010
  Serious: Yes (Hospitalization)
  Sender: FDA-Public Use
  Company Number: US-ACTELION-A-NJ2015-124719

PATIENT
  Age: 38 Year
  Sex: Female
  Weight: 96.6 kg

DRUGS (9)
  1. TRACLEER [Suspect]
     Active Substance: BOSENTAN
     Dosage: 125 MG, UNK
     Route: 048
  2. ADCIRCA [Concomitant]
     Active Substance: TADALAFIL
  3. COUMADIN [Concomitant]
     Active Substance: WARFARIN SODIUM
  4. TRACLEER [Suspect]
     Active Substance: BOSENTAN
     Indication: PULMONARY HYPERTENSION
     Dosage: 125 MG, BID
     Route: 048
     Dates: start: 20150804
  5. TRACLEER [Suspect]
     Active Substance: BOSENTAN
     Dosage: 125 MG, BID
     Route: 048
  6. REMODULIN [Suspect]
     Active Substance: TREPROSTINIL
     Dosage: UNK NG/KG, PER MIN
     Route: 058
  7. SILDENAFIL. [Concomitant]
     Active Substance: SILDENAFIL
  8. TRACLEER [Suspect]
     Active Substance: BOSENTAN
     Dosage: 125 MG, BID
     Route: 048
  9. REMODULIN [Suspect]
     Active Substance: TREPROSTINIL
     Indication: PRODUCT USED FOR UNKNOWN INDICATION
     Dosage: 50 NG/KG, PER MIN
     Route: 042
     Dates: start: 201511

REACTIONS (62)
  - Cold sweat [Unknown]
  - Catheter site pruritus [Unknown]
  - Dermatitis contact [Unknown]
  - Drug dose omission [Unknown]
  - Muscular weakness [Unknown]
  - Blood count abnormal [Unknown]
  - Purulent discharge [Recovered/Resolved]
  - Infusion site erythema [Unknown]
  - Device occlusion [Recovered/Resolved]
  - Hot flush [Unknown]
  - Fall [Unknown]
  - Device related sepsis [Recovered/Resolved]
  - Catheter site discharge [Recovered/Resolved]
  - Catheter site erythema [Unknown]
  - Catheter site dryness [Unknown]
  - Catheter site induration [Unknown]
  - Malaise [Unknown]
  - Syncope [Unknown]
  - Headache [Unknown]
  - Blindness transient [Unknown]
  - Heart rate increased [Unknown]
  - Movement disorder [Unknown]
  - Wrist fracture [Unknown]
  - Device related infection [Unknown]
  - Device dislocation [Unknown]
  - Hyperhidrosis [Recovering/Resolving]
  - Catheter site related reaction [Unknown]
  - Feeling hot [Unknown]
  - Chest pain [Unknown]
  - Decreased appetite [Unknown]
  - Palpitations [Recovering/Resolving]
  - Internal fixation of fracture [Unknown]
  - Fluid retention [Recovered/Resolved]
  - Device breakage [Unknown]
  - Infusion site swelling [Unknown]
  - Infusion site pain [Unknown]
  - Device kink [Unknown]
  - Pain in jaw [Recovering/Resolving]
  - Erythema [Unknown]
  - Hypotension [Unknown]
  - Dizziness [Unknown]
  - Asthenia [Not Recovered/Not Resolved]
  - Ankle fracture [Unknown]
  - Pyrexia [Recovered/Resolved]
  - Catheter management [Unknown]
  - Fatigue [Unknown]
  - Nausea [Unknown]
  - Skin disorder [Unknown]
  - Weight increased [Unknown]
  - Pain [Unknown]
  - Dyspnoea [Unknown]
  - Extra dose administered [Unknown]
  - Pain in extremity [Unknown]
  - Rash [Unknown]
  - Catheter site haemorrhage [Unknown]
  - Incorrect drug administration duration [Unknown]
  - Vision blurred [Recovering/Resolving]
  - Flushing [Recovering/Resolving]
  - Diarrhoea [Unknown]
  - Blood pressure decreased [Unknown]
  - Infusion site infection [Unknown]
  - Loss of consciousness [Unknown]

NARRATIVE: CASE EVENT DATE: 20151221
